FAERS Safety Report 9099333 (Version 1)
Quarter: 2013Q1

REPORT INFORMATION
  Report Type: Spontaneous
  Country: GR (occurrence: GR)
  Receive Date: 20130214
  Receipt Date: 20130214
  Transmission Date: 20140127
  Serious: Yes (Death, Hospitalization)
  Sender: FDA-Public Use
  Company Number: GR-SANOFI-AVENTIS-2013SA013407

PATIENT
  Age: 39 Year
  Sex: Female

DRUGS (5)
  1. FLUOROURACIL [Suspect]
     Indication: BREAST CANCER
     Dosage: TOTAL 4 CYCLES
     Route: 065
  2. EPIRUBICIN [Suspect]
     Indication: BREAST CANCER
     Dosage: TOTAL 4 CYCLES
     Route: 065
  3. CYCLOPHOSPHAMIDE [Suspect]
     Indication: BREAST CANCER
     Dosage: TOTAL 4 CYCLES
     Route: 065
  4. TAXOTERE [Suspect]
     Indication: BREAST CANCER
     Dosage: TOTAL 4 CYCLES
     Route: 065
  5. BEVACIZUMAB [Suspect]
     Indication: BREAST CANCER
     Dosage: TOTAL 4 CYCLES
     Route: 065

REACTIONS (9)
  - Cholecystitis acute [Unknown]
  - Abdominal pain upper [Unknown]
  - Abdominal pain upper [Unknown]
  - Pyrexia [Unknown]
  - Hepatic steatosis [Unknown]
  - Portal vein thrombosis [Fatal]
  - Portal hypertension [Fatal]
  - Hepatic failure [Fatal]
  - Ascites [Fatal]
